FAERS Safety Report 9075755 (Version 1)
Quarter: 2013Q1

REPORT INFORMATION
  Report Type: Spontaneous
  Country: PR (occurrence: PR)
  Receive Date: 20130131
  Receipt Date: 20130131
  Transmission Date: 20140127
  Serious: No
  Sender: FDA-Public Use
  Company Number: PR-ABBOTT-12P-131-0981703-00

PATIENT
  Age: 63 None
  Sex: Female
  Weight: 74.91 kg

DRUGS (6)
  1. HUMIRA [Suspect]
     Indication: PRODUCT USED FOR UNKNOWN INDICATION
     Route: 058
     Dates: start: 2011, end: 201209
  2. HUMIRA [Suspect]
     Route: 058
     Dates: start: 201210, end: 201211
  3. HUMIRA [Suspect]
     Route: 058
     Dates: start: 20121129
  4. METHOTREXATE [Concomitant]
     Indication: RHEUMATOID ARTHRITIS
     Route: 048
  5. ADVIL [Concomitant]
     Indication: PAIN
     Route: 048
  6. SYNTHROID [Concomitant]
     Indication: HYPOTHYROIDISM
     Route: 048

REACTIONS (5)
  - Infection [Unknown]
  - Urinary tract infection [Recovered/Resolved]
  - Local swelling [Recovering/Resolving]
  - Pharyngitis [Recovered/Resolved]
  - Asthma [Not Recovered/Not Resolved]
